FAERS Safety Report 18516355 (Version 1)
Quarter: 2020Q4

REPORT INFORMATION
  Report Type: Spontaneous
  Country: US (occurrence: US)
  Receive Date: 20201118
  Receipt Date: 20201118
  Transmission Date: 20210114
  Serious: Yes (Hospitalization)
  Sender: FDA-Public Use
  Company Number: None

PATIENT
  Age: 84 Year
  Sex: Male
  Weight: 58.5 kg

DRUGS (1)
  1. NAPROXEN SODIUM. [Suspect]
     Active Substance: NAPROXEN SODIUM
     Indication: BACK PAIN
     Route: 048

REACTIONS (5)
  - Haematemesis [None]
  - Gastrointestinal haemorrhage [None]
  - Dizziness [None]
  - Asthenia [None]
  - Abdominal pain upper [None]

NARRATIVE: CASE EVENT DATE: 20191226
